FAERS Safety Report 10021884 (Version 1)
Quarter: 2014Q1

REPORT INFORMATION
  Report Type: Report from Study
  Country: JP (occurrence: JP)
  Receive Date: 20140319
  Receipt Date: 20140319
  Transmission Date: 20141002
  Serious: Yes (Life-Threatening)
  Sender: FDA-Public Use
  Company Number: JP-PFIZER INC-2014075124

PATIENT
  Age: 58 Year
  Sex: Male
  Weight: 62 kg

DRUGS (8)
  1. XALKORI [Suspect]
     Indication: NON-SMALL CELL LUNG CANCER
     Dosage: 250 MG, 2X/DAY
     Route: 048
     Dates: start: 20140124, end: 20140131
  2. FLORINEF [Concomitant]
     Dosage: 0.05 MG/DAY
     Route: 048
     Dates: start: 20131226
  3. MAGNESIUM OXIDE [Concomitant]
     Dosage: 0.5 G, 3X/DAY
     Route: 048
     Dates: start: 20131227
  4. PANTOSIN [Concomitant]
     Dosage: 1.2 G, 3X/DAY
     Route: 048
     Dates: start: 20131227
  5. LANSOPRAZOLE [Concomitant]
     Dosage: 30 MG ONCE DAILY
     Route: 048
     Dates: start: 20131227
  6. OXYCONTIN [Concomitant]
     Dosage: 5 MG, 3X/DAY
     Route: 048
     Dates: start: 20131227, end: 20140131
  7. NOVAMIN [Concomitant]
     Dosage: 5 MG, 3X/DAY
     Route: 048
     Dates: start: 20131227, end: 20140131
  8. PRIMPERAN [Concomitant]
     Dosage: 5 MG, 3X/DAY
     Route: 048
     Dates: start: 20131225, end: 20140228

REACTIONS (1)
  - Gastrointestinal toxicity [Recovered/Resolved with Sequelae]
